FAERS Safety Report 10297680 (Version 1)
Quarter: 2014Q3

REPORT INFORMATION
  Report Type: Spontaneous
  Country: DK (occurrence: DK)
  Receive Date: 20140711
  Receipt Date: 20140711
  Transmission Date: 20150326
  Serious: Yes (Other)
  Sender: FDA-Public Use
  Company Number: DK-ROCHE-1430190

PATIENT
  Age: 52 Year
  Sex: Female
  Weight: 63 kg

DRUGS (9)
  1. CENTYL MED KALIUMKLORID [Concomitant]
     Active Substance: BENDROFLUMETHIAZIDE\POTASSIUM CHLORIDE
     Indication: DIURETIC THERAPY
     Route: 065
  2. FENTANYL. [Concomitant]
     Active Substance: FENTANYL
     Indication: PAIN
     Route: 065
  3. ZARATOR [Concomitant]
     Active Substance: ATORVASTATIN CALCIUM
     Indication: HYPERCHOLESTEROLAEMIA
     Route: 065
  4. VENTOLINE [Concomitant]
     Active Substance: ALBUTEROL
     Indication: ASTHMA
     Route: 065
  5. HJERTEMAGNYL [Concomitant]
     Active Substance: ASPIRIN\MAGNESIUM OXIDE
     Indication: ANTICOAGULANT THERAPY
     Route: 065
  6. PINEX (DENMARK) [Concomitant]
     Indication: PAIN
     Route: 065
  7. SERETIDE [Concomitant]
     Active Substance: FLUTICASONE FUROATE\SALMETEROL XINAFOATE
     Indication: ASTHMA
     Route: 065
  8. PEGASYS [Suspect]
     Active Substance: PEGINTERFERON ALFA-2A
     Indication: THROMBOCYTOSIS
     Route: 058
     Dates: start: 20130319
  9. VIBEDEN [Concomitant]
     Indication: ANAEMIA VITAMIN B12 DEFICIENCY
     Route: 065

REACTIONS (1)
  - Iridocyclitis [Recovered/Resolved]

NARRATIVE: CASE EVENT DATE: 20140409
